FAERS Safety Report 5452371-5 (Version None)
Quarter: 2007Q3

REPORT INFORMATION
  Report Type: 
  Country: None (occurrence: None)
  Receive Date: 20070914
  Receipt Date: 20070831
  Transmission Date: 20080115
  Serious: Yes (Other)
  Sender: FDA-Public Use
  Company Number: US-KINGPHARMUSA00001-K200701125

PATIENT

DRUGS (2)
  1. ALTACE [Suspect]
     Indication: HYPERTENSION
     Dosage: 1 DF, QD
     Route: 048
     Dates: start: 20070221, end: 20070305
  2. OTOMIZE [Concomitant]
     Dosage: 1 DF, TID
     Dates: start: 20070221

REACTIONS (4)
  - CHEST PAIN [None]
  - COUGH [None]
  - DIZZINESS [None]
  - NAUSEA [None]
